FAERS Safety Report 6634721-7 (Version None)
Quarter: 2010Q1

REPORT INFORMATION
  Report Type: 
  Country: None (occurrence: None)
  Receive Date: 20100225
  Receipt Date: 20090701
  Transmission Date: 20100710
  Serious: No
  Sender: FDA-Public Use
  Company Number: 2009-00637

PATIENT
  Age: 52 Year
  Sex: Female
  Weight: 72.5755 kg

DRUGS (8)
  1. ZICAM COLD REMEDY NASAL GEL [Suspect]
     Dosage: YEARS AGO
  2. ZICAM COLD REMEDY GEL SWABS [Suspect]
     Dosage: YEARS AGO
  3. ZICAM ALLERGY RELIEF NASAL GEL [Suspect]
     Dosage: YEARS AGO
  4. ZICAM EXTREME CONGESTION RELIEF [Suspect]
     Dosage: YEARS AGO
  5. ZICAM ALLERGY RELIEF GEL SWABS [Suspect]
     Dosage: YEARS AGO
  6. ZICAM COLD REMEDY RAPIDMELTS W/VITAMIN C + ECHINACEA [Suspect]
     Dosage: YEARS AGO
  7. ZICAM COLD REMEDY RAPIDMELTS [Suspect]
     Dosage: YEARS AGO
  8. BENICAR [Concomitant]

REACTIONS (2)
  - AGEUSIA [None]
  - ANOSMIA [None]
